FAERS Safety Report 8238888 (Version 2)
Quarter: 2012Q4

REPORT INFORMATION
  Report Type: 
  Country: US (occurrence: US)
  Receive Date: 20111110
  Receipt Date: 20120914
  Transmission Date: 20130627
  Serious: Yes (Other)
  Sender: FDA-Public Use
  Company Number: US-US-EMD SERONO, INC.-7093437

PATIENT
  Age: 31 None
  Sex: Male
  Weight: 76 kg

DRUGS (7)
  1. REBIF [Suspect]
     Indication: MULTIPLE SCLEROSIS
     Route: 058
     Dates: start: 20110913
  2. ALEVE [Concomitant]
     Indication: PREMEDICATION
  3. NUVIGIL [Concomitant]
     Indication: FATIGUE
     Route: 048
  4. AMITRIPTYLINE [Concomitant]
     Indication: HEADACHE
  5. GABAPENTIN [Concomitant]
     Indication: PAIN
  6. VICODIN [Concomitant]
     Indication: HEADACHE
  7. OMEPRAZOLE [Concomitant]
     Indication: GASTROOESOPHAGEAL REFLUX DISEASE

REACTIONS (2)
  - Suture insertion [Unknown]
  - Fall [Unknown]
